FAERS Safety Report 8953122 (Version 2)
Quarter: 2013Q1

REPORT INFORMATION
  Report Type: Spontaneous
  Country: US (occurrence: US)
  Receive Date: 20121206
  Receipt Date: 20130116
  Transmission Date: 20140127
  Serious: Yes (Other)
  Sender: FDA-Public Use
  Company Number: US-009507513-1212USA001447

PATIENT
  Age: 18 Year
  Sex: Female
  Weight: 77.98 kg

DRUGS (1)
  1. IMPLANON [Suspect]
     Indication: CONTRACEPTION
     Dosage: UNK,3 YEARS
     Route: 059
     Dates: start: 20110407

REACTIONS (5)
  - Loss of consciousness [Not Recovered/Not Resolved]
  - Local swelling [Not Recovered/Not Resolved]
  - Nausea [Not Recovered/Not Resolved]
  - Dizziness [Not Recovered/Not Resolved]
  - Migraine [Not Recovered/Not Resolved]
